FAERS Safety Report 9717755 (Version 1)
Quarter: 2013Q4

REPORT INFORMATION
  Report Type: Spontaneous
  Country: US (occurrence: US)
  Receive Date: 20131127
  Receipt Date: 20131127
  Transmission Date: 20140711
  Serious: Yes (Hospitalization)
  Sender: FDA-Public Use
  Company Number: US-GLAXOSMITHKLINE-A1051071A

PATIENT
  Age: 67 Year
  Sex: Female

DRUGS (12)
  1. COREG CR [Suspect]
     Indication: CARDIAC FAILURE CONGESTIVE
     Dosage: 20MG PER DAY
     Route: 048
  2. CARVEDILOL [Suspect]
     Indication: CARDIAC FAILURE CONGESTIVE
     Route: 065
     Dates: start: 20130920, end: 201310
  3. PLAVIX [Concomitant]
  4. BABY ASPIRIN [Concomitant]
  5. FUROSEMIDE [Concomitant]
  6. GABAPENTIN [Concomitant]
  7. GLIPIZIDE [Concomitant]
  8. CLONIDINE [Concomitant]
  9. POTASSIUM [Concomitant]
  10. FAMOTIDINE [Concomitant]
  11. HYDRALAZINE [Concomitant]
  12. INSULIN [Concomitant]

REACTIONS (9)
  - Coronary artery bypass [Not Recovered/Not Resolved]
  - Dizziness [Not Recovered/Not Resolved]
  - Fatigue [Not Recovered/Not Resolved]
  - Blood glucose increased [Not Recovered/Not Resolved]
  - Weight increased [Not Recovered/Not Resolved]
  - Sleep disorder [Not Recovered/Not Resolved]
  - Restless legs syndrome [Not Recovered/Not Resolved]
  - Lung disorder [Not Recovered/Not Resolved]
  - Insomnia [Not Recovered/Not Resolved]
